FAERS Safety Report 14815053 (Version 1)
Quarter: 2018Q2

REPORT INFORMATION
  Report Type: Spontaneous
  Country: US (occurrence: US)
  Receive Date: 20180426
  Receipt Date: 20180426
  Transmission Date: 20180711
  Serious: Yes (Other)
  Sender: FDA-Public Use
  Company Number: US-WEST-WARD PHARMACEUTICALS CORP.-US-H14001-18-03164

PATIENT
  Age: 73 Year
  Sex: Female

DRUGS (1)
  1. FENTANYL. [Suspect]
     Active Substance: FENTANYL
     Indication: PRODUCT USED FOR UNKNOWN INDICATION
     Route: 042

REACTIONS (9)
  - Metabolic acidosis [Unknown]
  - Multiple organ dysfunction syndrome [Unknown]
  - Transplant failure [Unknown]
  - Encephalopathy [Unknown]
  - Fluid overload [Unknown]
  - Enterococcal sepsis [Unknown]
  - Acute kidney injury [Unknown]
  - Pleural effusion [Unknown]
  - Candida sepsis [Unknown]
